FAERS Safety Report 14264461 (Version 1)
Quarter: 2017Q4

REPORT INFORMATION
  Report Type: Spontaneous
  Country: IT (occurrence: IT)
  Receive Date: 20171208
  Receipt Date: 20171208
  Transmission Date: 20180321
  Serious: Yes (Death)
  Sender: FDA-Public Use
  Company Number: IT-IMPAX LABORATORIES, INC-2017-IPXL-03489

PATIENT
  Age: 42 Year
  Sex: Female

DRUGS (14)
  1. ALOE [Suspect]
     Active Substance: ALOE
     Indication: PRODUCT USED FOR UNKNOWN INDICATION
     Dosage: UNK
     Route: 065
  2. VALERIAN EXTRACT [Suspect]
     Active Substance: VALERIAN EXTRACT
     Indication: PRODUCT USED FOR UNKNOWN INDICATION
     Dosage: UNK
     Route: 065
  3. BUPROPION HYDROCHLORIDE SR [Suspect]
     Active Substance: BUPROPION HYDROCHLORIDE
     Indication: OVERWEIGHT
     Dosage: 100 TO 150 MG/D
     Route: 065
  4. PHENYLPROPANOLAMINE [Suspect]
     Active Substance: PHENYLPROPANOLAMINE
     Indication: OVERWEIGHT
     Dosage: 30 TO 90 MG/D
     Route: 065
  5. CASCARA [Suspect]
     Active Substance: RHAMNUS PURSHIANA BARK EXTRACT
     Indication: PRODUCT USED FOR UNKNOWN INDICATION
     Dosage: UNK
     Route: 065
  6. HYPERICUM [Suspect]
     Active Substance: ST. JOHN^S WORT
     Indication: PRODUCT USED FOR UNKNOWN INDICATION
     Dosage: UNK
     Route: 065
  7. PHENDIMETRAZINE. [Suspect]
     Active Substance: PHENDIMETRAZINE TARTRATE
     Indication: OVERWEIGHT
     Dosage: DOSES RANGING FROM 100 TO 225 MG/D
     Route: 065
  8. GUARANA /01333101/ [Suspect]
     Active Substance: HERBALS\PAULLINIA CUPANA SEED
     Indication: PRODUCT USED FOR UNKNOWN INDICATION
     Dosage: UNK
     Route: 065
  9. TOPIRAMATE. [Suspect]
     Active Substance: TOPIRAMATE
     Indication: PRODUCT USED FOR UNKNOWN INDICATION
     Dosage: UNK
     Route: 065
  10. GLUCOMANNAN [Suspect]
     Active Substance: KONJAC MANNAN
     Indication: PRODUCT USED FOR UNKNOWN INDICATION
     Dosage: UNK
     Route: 065
  11. RHUBARB DRY EXTRACT [Suspect]
     Active Substance: HERBALS\RHUBARB
     Indication: PRODUCT USED FOR UNKNOWN INDICATION
     Dosage: UNK
     Route: 065
  12. GINSENG [Suspect]
     Active Substance: ASIAN GINSENG
     Indication: PRODUCT USED FOR UNKNOWN INDICATION
     Dosage: UNK
     Route: 065
  13. FLUOXETINE [Suspect]
     Active Substance: FLUOXETINE HYDROCHLORIDE
     Indication: PRODUCT USED FOR UNKNOWN INDICATION
     Dosage: UNK
     Route: 065
  14. DIPOTASSIUM CLORAZEPATE [Suspect]
     Active Substance: CLORAZEPATE DIPOTASSIUM
     Indication: PRODUCT USED FOR UNKNOWN INDICATION
     Dosage: UNK
     Route: 065

REACTIONS (1)
  - Sudden cardiac death [Fatal]
